FAERS Safety Report 13714400 (Version 2)
Quarter: 2017Q3

REPORT INFORMATION
  Report Type: Spontaneous
  Country: MX (occurrence: MX)
  Receive Date: 20170704
  Receipt Date: 20170802
  Transmission Date: 20171127
  Serious: Yes (Other)
  Sender: FDA-Public Use
  Company Number: MX-ALLERGAN-1727454US

PATIENT
  Age: 19 Year
  Sex: Male

DRUGS (4)
  1. BOTULINUM TOXIN TYPE A UNK [Suspect]
     Active Substance: BOTULINUM TOXIN TYPE A
     Dosage: 15 UNITS, SINGLE
     Route: 030
  2. BOTULINUM TOXIN TYPE A UNK [Suspect]
     Active Substance: BOTULINUM TOXIN TYPE A
     Dosage: 15 UNITS, SINGLE
     Route: 030
  3. BOTULINUM TOXIN TYPE A UNK [Suspect]
     Active Substance: BOTULINUM TOXIN TYPE A
     Indication: STRABISMUS
     Dosage: 10 UNITS, SINGLE
     Route: 030
  4. BOTULINUM TOXIN TYPE A UNK [Suspect]
     Active Substance: BOTULINUM TOXIN TYPE A
     Dosage: 10 UNITS, SINGLE
     Route: 030

REACTIONS (6)
  - Visual field defect [Unknown]
  - Vitreous floaters [Unknown]
  - Therapeutic response decreased [Unknown]
  - Retinal detachment [Recovered/Resolved]
  - Drug administration error [Unknown]
  - Retinal tear [Unknown]
